FAERS Safety Report 24708984 (Version 2)
Quarter: 2025Q1

REPORT INFORMATION
  Report Type: Spontaneous
  Country: JP (occurrence: JP)
  Receive Date: 20241208
  Receipt Date: 20250211
  Transmission Date: 20250408
  Serious: Yes (Other)
  Sender: ARDELYX
  Company Number: JP-ARDELYX-2024ARDX008658

PATIENT
  Age: 51 Year
  Sex: Male

DRUGS (3)
  1. TENAPANOR HYDROCHLORIDE [Suspect]
     Active Substance: TENAPANOR HYDROCHLORIDE
     Indication: Hyperphosphataemia
     Route: 048
     Dates: start: 20240710, end: 20240925
  2. NIFEDIPINE CR SANWA [Concomitant]
     Indication: Product used for unknown indication
     Route: 065
  3. AMLODIPINE BESYLATE [Concomitant]
     Active Substance: AMLODIPINE BESYLATE
     Indication: Product used for unknown indication
     Route: 065

REACTIONS (3)
  - Shunt occlusion [Unknown]
  - Nausea [Not Recovered/Not Resolved]
  - Vomiting [Not Recovered/Not Resolved]

NARRATIVE: CASE EVENT DATE: 20240904
